FAERS Safety Report 8600412-6 (Version None)
Quarter: 2012Q3

REPORT INFORMATION
  Report Type: 
  Country: None (occurrence: None)
  Receive Date: 20120817
  Receipt Date: 20120813
  Transmission Date: 20120928
  Serious: Yes (Hospitalization, Other)
  Sender: FDA-Public Use
  Company Number: US-BAYER-2012-083823

PATIENT
  Age: 77 Year
  Sex: Male

DRUGS (2)
  1. ANTITHROMBOTIC AGENTS [Suspect]
  2. BETASERON [Suspect]
     Indication: MULTIPLE SCLEROSIS
     Dosage: 0.3 MG, UNK
     Route: 058
     Dates: start: 20120727

REACTIONS (2)
  - HAEMORRHAGE [None]
  - CORONARY ARTERIAL STENT INSERTION [None]
